FAERS Safety Report 18783626 (Version 1)
Quarter: 2021Q1

REPORT INFORMATION
  Report Type: Spontaneous
  Country: US (occurrence: US)
  Receive Date: 20210125
  Receipt Date: 20210125
  Transmission Date: 20210419
  Serious: Yes (Hospitalization, Other)
  Sender: FDA-Public Use
  Company Number: US-BAXTER-2021BAX001019

PATIENT
  Age: 28 Year
  Sex: Female

DRUGS (15)
  1. ONDANSETRON INJECTION, USP?SINGLE DOSE [Suspect]
     Active Substance: ONDANSETRON
     Route: 065
  2. HALOPERIDOL LACTATE INJECTION, USP [Suspect]
     Active Substance: HALOPERIDOL LACTATE
     Indication: PSYCHOTIC SYMPTOM
     Dosage: TITRATED UP TO A TOTAL DAILY DOSAGE OF 20 MG
     Route: 065
  3. DOXYLAMINE SUCCINATE. [Suspect]
     Active Substance: DOXYLAMINE SUCCINATE
     Indication: HYPEREMESIS GRAVIDARUM
     Route: 065
  4. SERTRALINE [Suspect]
     Active Substance: SERTRALINE HYDROCHLORIDE
     Route: 048
  5. HALOPERIDOL. [Suspect]
     Active Substance: HALOPERIDOL
     Indication: PSYCHOTIC SYMPTOM
     Route: 048
  6. FAMOTIDINE INJECTION [Suspect]
     Active Substance: FAMOTIDINE
     Indication: HYPEREMESIS GRAVIDARUM
     Route: 042
  7. DOXYLAMINE SUCCINATE. [Suspect]
     Active Substance: DOXYLAMINE SUCCINATE
     Route: 065
  8. SERTRALINE [Suspect]
     Active Substance: SERTRALINE HYDROCHLORIDE
     Indication: PSYCHOTIC SYMPTOM
     Route: 065
  9. SERTRALINE [Suspect]
     Active Substance: SERTRALINE HYDROCHLORIDE
     Indication: MAJOR DEPRESSION
     Dosage: TITRATED UP
     Route: 065
  10. HALOPERIDOL LACTATE INJECTION, USP [Suspect]
     Active Substance: HALOPERIDOL LACTATE
     Route: 065
  11. PYRIDOXINE [Suspect]
     Active Substance: PYRIDOXINE
     Indication: HYPEREMESIS GRAVIDARUM
     Route: 065
  12. OLANZAPINE. [Suspect]
     Active Substance: OLANZAPINE
     Indication: PSYCHOTIC SYMPTOM
     Route: 065
  13. HALDOL DECANOATE [Suspect]
     Active Substance: HALOPERIDOL DECANOATE
     Indication: PSYCHOTIC SYMPTOM
     Route: 030
  14. ONDANSETRON INJECTION, USP?SINGLE DOSE [Suspect]
     Active Substance: ONDANSETRON
     Indication: HYPEREMESIS GRAVIDARUM
     Dosage: TOTAL DAILY DOSES NEVER EXCEEDED 12 MG
     Route: 065
  15. OLANZAPINE. [Suspect]
     Active Substance: OLANZAPINE
     Indication: MAJOR DEPRESSION
     Dosage: TITRATED UP
     Route: 065

REACTIONS (3)
  - Maternal exposure during pregnancy [Recovered/Resolved]
  - Hypertransaminasaemia [Recovering/Resolving]
  - Drug-induced liver injury [Recovering/Resolving]
